FAERS Safety Report 5191713-5 (Version None)
Quarter: 2006Q4

REPORT INFORMATION
  Report Type: 
  Country: None (occurrence: None)
  Receive Date: 20061219
  Receipt Date: 20061204
  Transmission Date: 20070319
  Serious: Yes (Hospitalization)
  Sender: FDA-Public Use
  Company Number: US-2006-012017

PATIENT
  Age: 60 Year
  Sex: Female
  Weight: 79.4 kg

DRUGS (17)
  1. BETASERON [Suspect]
     Indication: SECONDARY PROGRESSIVE MULTIPLE SCLEROSIS
     Dosage: 8 MIU, 1X/DAY, SUBCUTANEOUS
     Route: 058
     Dates: start: 20060701
  2. FOLTX (PYRIDOXINE) [Concomitant]
  3. SYNTHROID [Concomitant]
  4. BETAPACE [Concomitant]
  5. EFEXOR /USA/ (VENLAFAXINE HYDROXYCHLORIDE) [Concomitant]
  6. KLONOPIN [Concomitant]
  7. AMANTADINE HCL [Concomitant]
  8. NEXIUM [Concomitant]
  9. DITROPAN XL [Concomitant]
  10. RESTASIS [Concomitant]
  11. LYRICA [Concomitant]
  12. MOBITZ [Concomitant]
  13. CADUET [Concomitant]
  14. BACLOFEN [Concomitant]
  15. ACTONEL [Concomitant]
  16. PYRIDOXINE (PYRIDOXINE) [Concomitant]
  17. CYANOCOBALAMIN [Concomitant]

REACTIONS (11)
  - ANGINA PECTORIS [None]
  - CYSTITIS [None]
  - DYSPHAGIA [None]
  - ENTHESOPATHY [None]
  - KIDNEY INFECTION [None]
  - MULTIPLE SCLEROSIS [None]
  - NEPHROLITHIASIS [None]
  - NEURITIS [None]
  - RADICULITIS [None]
  - SEPSIS [None]
  - SPONDYLITIS [None]
